FAERS Safety Report 17137046 (Version 2)
Quarter: 2020Q1

REPORT INFORMATION
  Report Type: Spontaneous
  Country: CA (occurrence: CA)
  Receive Date: 20191210
  Receipt Date: 20200122
  Transmission Date: 20200409
  Serious: Yes (Other)
  Sender: FDA-Public Use
  Company Number: CA-ALLERGAN-1949608US

PATIENT
  Sex: Female
  Weight: 71 kg

DRUGS (14)
  1. PANTOPRAZOLE MAGNESIUM [Concomitant]
     Active Substance: PANTOPRAZOLE MAGNESIUM
  2. LIPITOR [Concomitant]
     Active Substance: ATORVASTATIN CALCIUM
  3. MOMETASONE FUROATE. [Concomitant]
     Active Substance: MOMETASONE FUROATE
  4. ERGOCALCIFEROL. [Concomitant]
     Active Substance: ERGOCALCIFEROL
  5. MESALAZINE UNK [Suspect]
     Active Substance: MESALAMINE
     Indication: PRODUCT USED FOR UNKNOWN INDICATION
     Dosage: 500 MG, BID
     Route: 065
  6. TYLENOL [Concomitant]
     Active Substance: ACETAMINOPHEN
  7. MESALAZINE UNK [Suspect]
     Active Substance: MESALAMINE
     Dosage: UNK
     Route: 065
  8. VITAMIN D NOS [Concomitant]
     Active Substance: VITAMIN D NOS
  9. INFLIXIMAB [Suspect]
     Active Substance: INFLIXIMAB
     Indication: COLITIS ULCERATIVE
     Dosage: 300 MG, EVERY 6 WEEKS
     Route: 042
  10. ACTONEL [Concomitant]
     Active Substance: RISEDRONATE SODIUM
  11. BUSCOPAN [Concomitant]
     Active Substance: BUTYLSCOPOLAMINE BROMIDE
  12. PREDNISONE. [Concomitant]
     Active Substance: PREDNISONE
  13. SYMBICORT [Concomitant]
     Active Substance: BUDESONIDE\FORMOTEROL FUMARATE DIHYDRATE
  14. DICLOFENAC [Concomitant]
     Active Substance: DICLOFENAC

REACTIONS (9)
  - General physical health deterioration [Recovered/Resolved]
  - Blood pressure diastolic increased [Recovered/Resolved]
  - Off label use [Unknown]
  - Chest discomfort [Recovered/Resolved]
  - Dizziness [Recovered/Resolved]
  - Product use issue [Unknown]
  - Head discomfort [Recovered/Resolved]
  - Haematochezia [Recovered/Resolved]
  - Colitis ulcerative [Recovered/Resolved]
